FAERS Safety Report 6434260-2 (Version None)
Quarter: 2009Q4

REPORT INFORMATION
  Report Type: 
  Country: None (occurrence: None)
  Receive Date: 20091110
  Receipt Date: 20090424
  Transmission Date: 20100525
  Serious: No
  Sender: FDA-Public Use
  Company Number: US-ASTRAZENECA-2009SE08919

PATIENT
  Sex: Male

DRUGS (6)
  1. PRILOSEC OTC [Suspect]
     Dosage: 1 TABLET, 2 /DAY
     Route: 048
  2. BLOOD PRESSURE MEDICATIONS [Concomitant]
     Dosage: UNKNOWN
  3. LIPITOR [Concomitant]
     Dosage: UNKNOWN
  4. NIACIN [Concomitant]
     Dosage: UNKNOWN
  5. VITAMINS [Concomitant]
     Dosage: UNKNOWN
  6. ALLOPURINOL [Concomitant]
     Dosage: UNKNOWN

REACTIONS (1)
  - WEIGHT DECREASED [None]
